FAERS Safety Report 6873398-2 (Version None)
Quarter: 2010Q3

REPORT INFORMATION
  Report Type: 
  Country: None (occurrence: None)
  Receive Date: 20100723
  Receipt Date: 20090521
  Transmission Date: 20110219
  Serious: Yes (Hospitalization, Other)
  Sender: FDA-Public Use
  Company Number: US-PFIZER INC-2008157592

PATIENT
  Sex: Male
  Weight: 89.342 kg

DRUGS (4)
  1. CHANTIX [Suspect]
     Indication: SMOKING CESSATION THERAPY
     Dosage: UNK
     Dates: start: 20081111, end: 20081205
  2. ANTIHYPERTENSIVES [Concomitant]
     Dosage: UNK
  3. LORTAB [Concomitant]
     Indication: PAIN
     Dosage: 75 MG, UNK
  4. XANAX [Concomitant]
     Dosage: 1 MG, UNK

REACTIONS (1)
  - CONVULSION [None]
